FAERS Safety Report 23092191 (Version 1)
Quarter: 2023Q4

REPORT INFORMATION
  Report Type: Spontaneous
  Country: US (occurrence: US)
  Receive Date: 20231021
  Receipt Date: 20231021
  Transmission Date: 20240110
  Serious: Yes (Hospitalization, Other)
  Sender: FDA-Public Use
  Company Number: US-PROCTER+GAMBLE-PH23009460

PATIENT
  Age: 64 Year
  Sex: Female

DRUGS (5)
  1. DIPHENHYDRAMINE HYDROCHLORIDE [Suspect]
     Active Substance: DIPHENHYDRAMINE HYDROCHLORIDE
     Indication: Urticaria
     Dosage: UNK
     Route: 048
  2. SOLU-MEDROL [Concomitant]
     Active Substance: METHYLPREDNISOLONE SODIUM SUCCINATE
     Dosage: UNK
  3. LEVOFLOXACIN [Concomitant]
     Active Substance: LEVOFLOXACIN
     Dosage: UNK
  4. IV diuretic [Concomitant]
     Indication: Pneumonia
     Dosage: UNK
  5. IV diuretic [Concomitant]
     Indication: Cardiac failure

REACTIONS (15)
  - Neuroleptic malignant syndrome [Unknown]
  - Acute kidney injury [Unknown]
  - Cardiac failure [Unknown]
  - Condition aggravated [Unknown]
  - Pulmonary congestion [Unknown]
  - Respiratory distress [Unknown]
  - Lung infiltration [Unknown]
  - Atrial natriuretic peptide [Unknown]
  - Ejection fraction decreased [Unknown]
  - Right ventricular enlargement [Unknown]
  - Haemodynamic instability [Unknown]
  - Hyperthermia [Recovered/Resolved]
  - Pyrexia [Unknown]
  - White blood cell count increased [Unknown]
  - Pneumonia [Unknown]
